FAERS Safety Report 4729995-3 (Version None)
Quarter: 2005Q3

REPORT INFORMATION
  Report Type: 
  Country: None (occurrence: None)
  Receive Date: 20050801
  Receipt Date: 20050705
  Transmission Date: 20060218
  Serious: Yes (Life-Threatening, Hospitalization)
  Sender: FDA-Public Use
  Company Number: AU-BOEHRINGER INGELHEIM PHARMACEUTICALS, INC.-2005-BP-11254AU

PATIENT
  Sex: Female
  Weight: 80 kg

DRUGS (7)
  1. MOBIC [Suspect]
     Indication: OSTEOARTHRITIS
     Route: 048
     Dates: start: 20041008, end: 20050428
  2. ASPIRIN [Concomitant]
  3. ATROVENT [Concomitant]
  4. LIPEX [Concomitant]
  5. KARVEZIDE [Concomitant]
  6. SERETIDE [Concomitant]
  7. SERAPAX [Concomitant]

REACTIONS (1)
  - GASTRIC ULCER PERFORATION [None]
